FAERS Safety Report 22105522 (Version 1)
Quarter: 2023Q1

REPORT INFORMATION
  Report Type: Spontaneous
  Country: US (occurrence: US)
  Receive Date: 20230317
  Receipt Date: 20230317
  Transmission Date: 20230417
  Serious: Yes (Hospitalization)
  Sender: FDA-Public Use
  Company Number: US-STRIDES ARCOLAB LIMITED-2023SP003263

PATIENT
  Age: 54 Year
  Sex: Female

DRUGS (12)
  1. PREDNISOLONE [Suspect]
     Active Substance: PREDNISOLONE
     Indication: Immunosuppressant drug therapy
     Dosage: UNK
     Route: 065
  2. PREDNISOLONE [Suspect]
     Active Substance: PREDNISOLONE
     Indication: Systemic scleroderma
  3. PREDNISOLONE [Suspect]
     Active Substance: PREDNISOLONE
     Indication: Mixed connective tissue disease
  4. PREDNISOLONE [Suspect]
     Active Substance: PREDNISOLONE
     Indication: Sjogren^s syndrome
  5. PREDNISOLONE [Suspect]
     Active Substance: PREDNISOLONE
     Indication: Rheumatoid arthritis
  6. PREDNISOLONE [Suspect]
     Active Substance: PREDNISOLONE
     Indication: Polymyositis
  7. METHOTREXATE [Suspect]
     Active Substance: METHOTREXATE
     Indication: Immunosuppressant drug therapy
     Dosage: UNK
     Route: 065
  8. METHOTREXATE [Suspect]
     Active Substance: METHOTREXATE
     Indication: Polymyositis
  9. METHOTREXATE [Suspect]
     Active Substance: METHOTREXATE
     Indication: Rheumatoid arthritis
  10. METHOTREXATE [Suspect]
     Active Substance: METHOTREXATE
     Indication: Sjogren^s syndrome
  11. METHOTREXATE [Suspect]
     Active Substance: METHOTREXATE
     Indication: Mixed connective tissue disease
  12. METHOTREXATE [Suspect]
     Active Substance: METHOTREXATE
     Indication: Systemic scleroderma

REACTIONS (4)
  - Arthritis infective [Recovered/Resolved]
  - Device related infection [Recovered/Resolved]
  - Histoplasmosis [Recovered/Resolved]
  - Off label use [Unknown]
